FAERS Safety Report 8835232 (Version 5)
Quarter: 2012Q4

REPORT INFORMATION
  Report Type: Report from Study
  Country: CO (occurrence: CO)
  Receive Date: 20121011
  Receipt Date: 20121224
  Transmission Date: 20130627
  Serious: Yes (Hospitalization, Other)
  Sender: FDA-Public Use
  Company Number: CO-ROCHE-1144136

PATIENT
  Age: 66 Year
  Sex: Male

DRUGS (1)
  1. MYCOPHENOLATE MOFETIL [Suspect]
     Indication: LIVER TRANSPLANT
     Route: 048
     Dates: start: 20120904

REACTIONS (5)
  - Inflammatory bowel disease [Recovered/Resolved]
  - Liver transplant rejection [Recovered/Resolved]
  - Human polyomavirus infection [Recovering/Resolving]
  - Hypertensive crisis [Recovered/Resolved]
  - Cytomegalovirus infection [Recovering/Resolving]
